FAERS Safety Report 12563626 (Version 1)
Quarter: 2016Q3

REPORT INFORMATION
  Report Type: Spontaneous
  Country: GB (occurrence: GB)
  Receive Date: 20160715
  Receipt Date: 20160715
  Transmission Date: 20161109
  Serious: Yes (Other)
  Sender: FDA-Public Use
  Company Number: PHFR2016GB005566

PATIENT

DRUGS (1)
  1. GLIVEC [Suspect]
     Active Substance: IMATINIB MESYLATE
     Indication: PRODUCT USED FOR UNKNOWN INDICATION
     Route: 065

REACTIONS (4)
  - Graft versus host disease in skin [Unknown]
  - Plasma cell myeloma [Unknown]
  - Graft versus host disease in lung [Unknown]
  - Gait disturbance [Unknown]

NARRATIVE: CASE EVENT DATE: 2012
